FAERS Safety Report 8093662-1 (Version None)
Quarter: 2012Q1

REPORT INFORMATION
  Report Type: 
  Country: None (occurrence: None)
  Receive Date: 20120129
  Receipt Date: 20110929
  Transmission Date: 20120608
  Serious: No
  Sender: FDA-Public Use
  Company Number: US-ABBOTT-11P-163-0859963-00

PATIENT
  Age: 53 Year
  Sex: Female

DRUGS (12)
  1. FEMHRT [Concomitant]
     Indication: MENOPAUSE
     Dosage: IN THE MORNING
  2. BIOTIN [Concomitant]
     Indication: ALOPECIA
     Dosage: 1 PILL PER DAY
  3. VALIUM [Concomitant]
     Indication: MUSCLE SPASMS
  4. LOMOTIL [Concomitant]
     Indication: FUNCTIONAL GASTROINTESTINAL DISORDER
  5. HUMIRA [Suspect]
     Indication: RHEUMATOID ARTHRITIS
     Dates: start: 20110825
  6. ATENOLOL [Concomitant]
     Indication: HYPERTENSION
     Dosage: AT BEDTIME
  7. FORMULA 50 [Concomitant]
     Indication: ALOPECIA
     Dosage: 1 PILL PER DAY
  8. BENTYL [Concomitant]
     Indication: FUNCTIONAL GASTROINTESTINAL DISORDER
  9. TOPAMAX [Concomitant]
     Indication: MIGRAINE
     Dosage: AT BEDTIME
  10. BENAZEPRIL HYDROCHLORIDE [Concomitant]
     Indication: HYPERTENSION
     Dosage: EVERY MORNING
  11. NEURONTIN [Concomitant]
     Indication: NECK PAIN
     Dosage: 300 MG 1 IN THE MORNING, 2 AT NIGHT
  12. PREDNISONE TAB [Concomitant]
     Indication: PRODUCT USED FOR UNKNOWN INDICATION
     Dosage: EVERY MORNING

REACTIONS (2)
  - NAUSEA [None]
  - INAPPROPRIATE SCHEDULE OF DRUG ADMINISTRATION [None]
